FAERS Safety Report 25917360 (Version 1)
Quarter: 2025Q4

REPORT INFORMATION
  Report Type: Spontaneous
  Country: US (occurrence: US)
  Receive Date: 20251014
  Receipt Date: 20251014
  Transmission Date: 20260117
  Serious: No
  Sender: INNOGENIX, LLC
  Company Number: US-Innogenix, LLC-2186532

PATIENT

DRUGS (1)
  1. PROPRANOLOL HYDROCHLORIDE [Suspect]
     Active Substance: PROPRANOLOL HYDROCHLORIDE
     Indication: Anxiety

REACTIONS (6)
  - Nightmare [Unknown]
  - Product use in unapproved indication [Unknown]
  - Sleep disorder [Unknown]
  - Dizziness [Unknown]
  - Somnambulism [Unknown]
  - Sleep talking [Unknown]
